FAERS Safety Report 6904833-9 (Version None)
Quarter: 2010Q3

REPORT INFORMATION
  Report Type: 
  Country: None (occurrence: None)
  Receive Date: 20100804
  Receipt Date: 20090715
  Transmission Date: 20110219
  Serious: No
  Sender: FDA-Public Use
  Company Number: US-PFIZER INC-2009203230

PATIENT
  Sex: Female
  Weight: 90.718 kg

DRUGS (10)
  1. LYRICA [Suspect]
     Indication: FIBROMYALGIA
     Dosage: 75 MG, 1X/DAY
     Dates: start: 20090401
  2. GABAPENTIN [Suspect]
     Indication: FIBROMYALGIA
     Dosage: UNK MG, 1X/DAY
     Dates: start: 20090301
  3. NEXIUM [Concomitant]
     Indication: GASTROOESOPHAGEAL REFLUX DISEASE
     Dosage: UNK
  4. DIOVAN COMP [Concomitant]
     Indication: HYPERTENSION
     Dosage: UNK
  5. ATENOLOL [Concomitant]
     Indication: TACHYCARDIA
     Dosage: UNK
  6. TRAMADOL [Concomitant]
     Indication: PAIN
     Dosage: UNK
  7. VITAMIN D [Concomitant]
     Dosage: UNK
  8. CALCIUM [Concomitant]
     Dosage: UNK
  9. ZOLOFT [Concomitant]
     Dosage: UNK
  10. TYLENOL [Concomitant]
     Indication: PAIN
     Dosage: UNK

REACTIONS (11)
  - CONFUSIONAL STATE [None]
  - DIZZINESS [None]
  - DRUG INEFFECTIVE [None]
  - GAIT DISTURBANCE [None]
  - GLOSSODYNIA [None]
  - HEADACHE [None]
  - HYPERSOMNIA [None]
  - ORAL PAIN [None]
  - SINUSITIS [None]
  - THINKING ABNORMAL [None]
  - VISION BLURRED [None]
